FAERS Safety Report 15404209 (Version 2)
Quarter: 2018Q4

REPORT INFORMATION
  Report Type: Spontaneous
  Country: JP (occurrence: JP)
  Receive Date: 20180919
  Receipt Date: 20181009
  Transmission Date: 20190204
  Serious: No
  Sender: FDA-Public Use
  Company Number: JP-BAYER-2018-104367

PATIENT
  Age: 39 Year
  Sex: Female
  Weight: 52 kg

DRUGS (3)
  1. BAYASPIRIN 100 MG [Suspect]
     Active Substance: ASPIRIN
     Indication: PROTEIN S DECREASED
  2. BAYASPIRIN 100 MG [Suspect]
     Active Substance: ASPIRIN
     Indication: HABITUAL ABORTION
     Dosage: 100 MG, QD
     Route: 048
     Dates: start: 20180130, end: 20180718
  3. BAYASPIRIN 100 MG [Suspect]
     Active Substance: ASPIRIN
     Indication: PROTEIN S DEFICIENCY

REACTIONS (3)
  - Maternal exposure during pregnancy [None]
  - Off label use [None]
  - Product use in unapproved indication [None]
